FAERS Safety Report 20541705 (Version 1)
Quarter: 2022Q1

REPORT INFORMATION
  Report Type: Spontaneous
  Country: US (occurrence: US)
  Receive Date: 20220302
  Receipt Date: 20220302
  Transmission Date: 20220423
  Serious: Yes (Other)
  Sender: FDA-Public Use
  Company Number: US-JNJFOC-20211217903

PATIENT
  Age: 78 Year
  Sex: Male
  Weight: 83.082 kg

DRUGS (5)
  1. XARELTO [Suspect]
     Active Substance: RIVAROXABAN
     Indication: Atrial fibrillation
     Route: 048
  2. XARELTO [Suspect]
     Active Substance: RIVAROXABAN
     Indication: Cerebrovascular accident prophylaxis
     Route: 048
     Dates: start: 202010
  3. ASPIRIN [Suspect]
     Active Substance: ASPIRIN
     Indication: Stress fracture
     Route: 065
  4. FISH OIL [Concomitant]
     Active Substance: FISH OIL
  5. TOPROL XL [Concomitant]
     Active Substance: METOPROLOL SUCCINATE

REACTIONS (3)
  - Renal haemorrhage [Unknown]
  - Contusion [Unknown]
  - Weight decreased [Unknown]
